FAERS Safety Report 21514504 (Version 1)
Quarter: 2022Q4

REPORT INFORMATION
  Report Type: Spontaneous
  Country: CA (occurrence: CA)
  Receive Date: 20221027
  Receipt Date: 20221027
  Transmission Date: 20230113
  Serious: Yes (Hospitalization, Other)
  Sender: FDA-Public Use
  Company Number: CA-OTSUKA-2022_049487

PATIENT
  Age: 42 Year
  Sex: Female

DRUGS (2)
  1. ABILIFY MAINTENA [Interacting]
     Active Substance: ARIPIPRAZOLE
     Indication: Product used for unknown indication
     Dosage: 300 MG, EVERY 4 WEEKS
     Route: 030
  2. ABILIFY [Suspect]
     Active Substance: ARIPIPRAZOLE
     Indication: Product used for unknown indication
     Dosage: 25 MG
     Route: 048

REACTIONS (5)
  - Kidney infection [Unknown]
  - Extrapyramidal disorder [Unknown]
  - Joint swelling [Unknown]
  - Back pain [Unknown]
  - Underdose [Unknown]
